FAERS Safety Report 25401495 (Version 2)
Quarter: 2025Q2

REPORT INFORMATION
  Report Type: Spontaneous
  Country: GB (occurrence: GB)
  Receive Date: 20250605
  Receipt Date: 20250616
  Transmission Date: 20250717
  Serious: Yes (Other)
  Sender: GALPHARM INTERNATIONAL
  Company Number: None

PATIENT
  Age: 66 Year
  Sex: Female
  Weight: 74 kg

DRUGS (2)
  1. LOPERAMIDE HYDROCHLORIDE [Suspect]
     Active Substance: LOPERAMIDE HYDROCHLORIDE
     Indication: Product used for unknown indication
     Route: 065
     Dates: start: 20250303, end: 20250305
  2. OMEPRAZOLE [Concomitant]
     Active Substance: OMEPRAZOLE
     Indication: Gastrooesophageal reflux disease
     Route: 065
     Dates: start: 201505

REACTIONS (3)
  - Loss of consciousness [Recovered/Resolved]
  - Presyncope [Recovered/Resolved]
  - Balance disorder [Recovering/Resolving]

NARRATIVE: CASE EVENT DATE: 20250303
